FAERS Safety Report 19756833 (Version 1)
Quarter: 2021Q3

REPORT INFORMATION
  Report Type: Report from Study
  Country: DE (occurrence: DE)
  Receive Date: 20210827
  Receipt Date: 20210827
  Transmission Date: 20211014
  Serious: Yes (Hospitalization, Other)
  Sender: FDA-Public Use
  Company Number: DE-TAKEDA-DE202022384

PATIENT
  Age: 55 Year
  Sex: Female
  Weight: 48 kg

DRUGS (16)
  1. TEDUGLUTIDE [Suspect]
     Active Substance: TEDUGLUTIDE
     Dosage: 2.60 MILLIGRAM, QD
     Route: 065
     Dates: start: 201807, end: 201809
  2. BUPRENORPHIN [Concomitant]
     Active Substance: BUPRENORPHINE
     Dosage: 52.50 UNK
     Route: 008
  3. TEDUGLUTIDE [Suspect]
     Active Substance: TEDUGLUTIDE
     Dosage: 2.60 MILLIGRAM, QD
     Route: 065
     Dates: start: 201807, end: 201809
  4. TEDUGLUTIDE [Suspect]
     Active Substance: TEDUGLUTIDE
     Dosage: 2.60 MILLIGRAM, QD
     Route: 065
     Dates: start: 201807, end: 201809
  5. TEDUGLUTIDE [Suspect]
     Active Substance: TEDUGLUTIDE
     Indication: SHORT-BOWEL SYNDROME
     Dosage: 2.40 MILLIGRAM, QD
     Route: 065
     Dates: start: 20160126, end: 201807
  6. TEDUGLUTIDE [Suspect]
     Active Substance: TEDUGLUTIDE
     Dosage: 2.40 MILLIGRAM, QD
     Route: 065
     Dates: start: 201809
  7. TEDUGLUTIDE [Suspect]
     Active Substance: TEDUGLUTIDE
     Indication: SHORT-BOWEL SYNDROME
     Dosage: 2.40 MILLIGRAM, QD
     Route: 065
     Dates: start: 20160126, end: 201807
  8. TEDUGLUTIDE [Suspect]
     Active Substance: TEDUGLUTIDE
     Dosage: 2.60 MILLIGRAM, QD
     Route: 065
     Dates: start: 201807, end: 201809
  9. TEDUGLUTIDE [Suspect]
     Active Substance: TEDUGLUTIDE
     Dosage: 2.40 MILLIGRAM, QD
     Route: 065
     Dates: start: 201809
  10. TEDUGLUTIDE [Suspect]
     Active Substance: TEDUGLUTIDE
     Indication: SHORT-BOWEL SYNDROME
     Dosage: 2.40 MILLIGRAM, QD
     Route: 065
     Dates: start: 20160126, end: 201807
  11. TEDUGLUTIDE [Suspect]
     Active Substance: TEDUGLUTIDE
     Indication: SHORT-BOWEL SYNDROME
     Dosage: 2.40 MILLIGRAM, QD
     Route: 065
     Dates: start: 20160126, end: 201807
  12. TEDUGLUTIDE [Suspect]
     Active Substance: TEDUGLUTIDE
     Dosage: 2.40 MILLIGRAM, QD
     Route: 065
     Dates: start: 201809
  13. BUPRENORPHIN [Concomitant]
     Active Substance: BUPRENORPHINE
     Dosage: 0.2 MILLIGRAM, PRN
     Route: 065
  14. TEDUGLUTIDE [Suspect]
     Active Substance: TEDUGLUTIDE
     Dosage: 2.40 MILLIGRAM, QD
     Route: 065
     Dates: start: 201809
  15. TRIMIPRAMIN [Concomitant]
     Active Substance: TRIMIPRAMINE
     Dosage: 100 MILLIGRAM, BID
     Route: 065
     Dates: start: 20201130
  16. METAMIZOLE [Concomitant]
     Active Substance: METAMIZOLE
     Indication: PAIN
     Dosage: 40 GTT DROPS, QID
     Route: 048

REACTIONS (2)
  - Epilepsy [Recovered/Resolved]
  - Fractured sacrum [Recovered/Resolved]

NARRATIVE: CASE EVENT DATE: 20200301
